FAERS Safety Report 4908073-4 (Version None)
Quarter: 2006Q1

REPORT INFORMATION
  Report Type: 
  Country: None (occurrence: None)
  Receive Date: 20060113
  Receipt Date: 20050926
  Transmission Date: 20060701
  Serious: No
  Sender: FDA-Public Use
  Company Number: 2005SP003250

PATIENT
  Age: 38 Year
  Sex: Male
  Weight: 99.7913 kg

DRUGS (4)
  1. LUNESTA [Suspect]
     Indication: INSOMNIA
     Dosage: 3 MG; HS; ORAL
     Route: 048
     Dates: start: 20050924
  2. OXYCONTIN [Concomitant]
  3. AMBIEN [Concomitant]
  4. THYROXIN [Concomitant]

REACTIONS (3)
  - DYSGEUSIA [None]
  - INSOMNIA [None]
  - SOMNOLENCE [None]
